FAERS Safety Report 6303496-3 (Version None)
Quarter: 2009Q3

REPORT INFORMATION
  Report Type: 
  Country: None (occurrence: None)
  Receive Date: 20090810
  Receipt Date: 20090806
  Transmission Date: 20100115
  Serious: Yes (Death, Hospitalization)
  Sender: FDA-Public Use
  Company Number: PHHY2009BR17533

PATIENT
  Age: 94 Year
  Sex: Female

DRUGS (1)
  1. EXFORGE [Suspect]
     Indication: HYPERTENSION
     Dosage: 80/5 MG
     Route: 048
     Dates: start: 20060101

REACTIONS (8)
  - ASPIRATION [None]
  - ASTHENIA [None]
  - BEDRIDDEN [None]
  - DEATH [None]
  - FALL [None]
  - FEMUR FRACTURE [None]
  - MOVEMENT DISORDER [None]
  - VOMITING [None]
